FAERS Safety Report 13226130 (Version 2)
Quarter: 2017Q1

REPORT INFORMATION
  Report Type: Report from Study
  Country: GB (occurrence: GB)
  Receive Date: 20170213
  Receipt Date: 20170328
  Transmission Date: 20170428
  Serious: Yes (Hospitalization, Other)
  Sender: FDA-Public Use
  Company Number: GB-JNJFOC-20170208784

PATIENT
  Age: 38 Year
  Sex: Female
  Weight: 50 kg

DRUGS (4)
  1. TRAMADOL. [Concomitant]
     Active Substance: TRAMADOL
     Route: 030
     Dates: start: 2015
  2. CYCLIZINE [Concomitant]
     Active Substance: CYCLIZINE
     Dosage: PRN (WHEN NECESSARY)
     Route: 030
     Dates: start: 2015
  3. STELARA [Suspect]
     Active Substance: USTEKINUMAB
     Indication: CROHN^S DISEASE
     Route: 058
     Dates: start: 20161027, end: 20161221
  4. PANTOPRAZOLE [Concomitant]
     Active Substance: PANTOPRAZOLE SODIUM
     Route: 042
     Dates: start: 20170125

REACTIONS (3)
  - Crohn^s disease [Not Recovered/Not Resolved]
  - Wound abscess [Not Recovered/Not Resolved]
  - Fistula of small intestine [Not Recovered/Not Resolved]

NARRATIVE: CASE EVENT DATE: 20161201
